FAERS Safety Report 16786243 (Version 1)
Quarter: 2019Q3

REPORT INFORMATION
  Report Type: Spontaneous
  Country: IT (occurrence: IT)
  Receive Date: 20190909
  Receipt Date: 20190909
  Transmission Date: 20191005
  Serious: Yes (Hospitalization)
  Sender: FDA-Public Use
  Company Number: IT-PFIZER INC-2019383769

PATIENT
  Age: 59 Year
  Sex: Female

DRUGS (1)
  1. XANAX [Suspect]
     Active Substance: ALPRAZOLAM
     Indication: INSOMNIA
     Dosage: 5 MG, SINGLE
     Route: 048
     Dates: start: 20190813, end: 20190813

REACTIONS (4)
  - Substance abuse [Recovered/Resolved]
  - Product use in unapproved indication [Unknown]
  - Affective disorder [Recovered/Resolved]
  - Off label use [Unknown]

NARRATIVE: CASE EVENT DATE: 20190813
